FAERS Safety Report 17109817 (Version 1)
Quarter: 2019Q4

REPORT INFORMATION
  Report Type: Spontaneous
  Country: US (occurrence: US)
  Receive Date: 20191204
  Receipt Date: 20191204
  Transmission Date: 20200122
  Serious: No
  Sender: FDA-Public Use
  Company Number: US-APOTEX-2018AP024197

PATIENT
  Sex: Female

DRUGS (1)
  1. FENTANYL. [Suspect]
     Active Substance: FENTANYL
     Indication: ANALGESIC THERAPY
     Dosage: ONE EVERY 72 HOURS
     Route: 065

REACTIONS (4)
  - Device leakage [Unknown]
  - Product physical issue [Unknown]
  - Product adhesion issue [Unknown]
  - Drug ineffective [Unknown]
